FAERS Safety Report 13121270 (Version 1)
Quarter: 2017Q1

REPORT INFORMATION
  Report Type: Other
  Country: FR (occurrence: FR)
  Receive Date: 20170117
  Receipt Date: 20170117
  Transmission Date: 20170428
  Serious: Yes (Hospitalization)
  Sender: FDA-Public Use
  Company Number: FR-ASTELLAS-2017US001546

PATIENT
  Age: 28 Year
  Sex: Female

DRUGS (7)
  1. PROGRAF [Suspect]
     Active Substance: TACROLIMUS\TACROLIMUS ANHYDROUS
     Indication: NECROTISING MYOSITIS
     Dosage: 1 DF, TWICE DAILY (1 IN THE MORNING AND 1 AT NIGHT)
     Route: 065
  2. NIVAQUINE                          /00001003/ [Concomitant]
     Indication: PRODUCT USED FOR UNKNOWN INDICATION
     Dosage: 1 DF, TWICE DAILY (100 MG IN THE MORNING AND AT NIGHT)
     Route: 048
     Dates: start: 2010
  3. BENLYSTA [Concomitant]
     Active Substance: BELIMUMAB
     Indication: LUPUS-LIKE SYNDROME
     Route: 042
     Dates: start: 201512, end: 201607
  4. CALCIDOSE                          /07357001/ [Concomitant]
     Active Substance: CALCIUM CARBONATE
     Indication: PRODUCT USED FOR UNKNOWN INDICATION
     Dosage: 500 MG / 400 IU, UNKNOWN FREQ. (LONG TERM TREATMENT)
     Route: 048
  5. CORTANCYL [Suspect]
     Active Substance: PREDNISONE
     Indication: NECROTISING MYOSITIS
     Dosage: 3 DF, ONCE DAILY (3 IN THE MORNING)
     Route: 048
     Dates: start: 201511
  6. EUPANTOL [Concomitant]
     Active Substance: PANTOPRAZOLE SODIUM
     Indication: PRODUCT USED FOR UNKNOWN INDICATION
     Dosage: 1 DF, ONCE DAILY (LONG TERM TREATMENT) (1 IN THE MORNING)
     Route: 048
  7. PROGRAF [Suspect]
     Active Substance: TACROLIMUS\TACROLIMUS ANHYDROUS
     Dosage: 2 DF, TWICE DAILY (2 IN THE MORNING AND 2 AT NIGHT)
     Route: 048
     Dates: start: 201607

REACTIONS (11)
  - Abdominal discomfort [Unknown]
  - Hypertrichosis [Unknown]
  - Hypokalaemia [Recovered/Resolved]
  - Off label use [Unknown]
  - Myalgia [Recovered/Resolved]
  - Lipohypertrophy [Unknown]
  - Amyotrophy [Unknown]
  - Sedation [Unknown]
  - Incorrect dose administered [Unknown]
  - Cushingoid [Unknown]
  - Muscle fatigue [Unknown]

NARRATIVE: CASE EVENT DATE: 20161202
